FAERS Safety Report 9293396 (Version 1)
Quarter: 2013Q2

REPORT INFORMATION
  Report Type: Report from Study
  Country: CA (occurrence: CA)
  Receive Date: 20130515
  Receipt Date: 20130515
  Transmission Date: 20140414
  Serious: Yes (Hospitalization)
  Sender: FDA-Public Use
  Company Number: CA-JNJFOC-20130506037

PATIENT
  Sex: Female
  Weight: 60 kg

DRUGS (6)
  1. REMICADE [Suspect]
     Indication: CROHN^S DISEASE
     Dosage: DOSE: 400 MG EVERY 4 WEEKS ALTERNATING WITH 300 MG
     Route: 042
  2. REMICADE [Suspect]
     Indication: CROHN^S DISEASE
     Route: 042
  3. REMICADE [Suspect]
     Indication: CROHN^S DISEASE
     Dosage: DOSE: 400 MG EVERY 4 WEEKS ALTERNATING WITH 300 MG
     Route: 042
     Dates: start: 20100222
  4. REMICADE [Suspect]
     Indication: CROHN^S DISEASE
     Route: 042
  5. VITAMIN B12 [Concomitant]
     Route: 065
  6. IMURAN [Concomitant]
     Route: 065
     Dates: start: 201303

REACTIONS (3)
  - Stress [Unknown]
  - Crohn^s disease [Unknown]
  - Drug effect decreased [Unknown]
